FAERS Safety Report 4771759-9 (Version None)
Quarter: 2005Q3

REPORT INFORMATION
  Report Type: 
  Country: None (occurrence: None)
  Receive Date: 20050916
  Receipt Date: 20050315
  Transmission Date: 20060218
  Serious: Yes (Hospitalization)
  Sender: FDA-Public Use
  Company Number: US-MERCK-0503USA02859

PATIENT
  Age: 67 Year
  Sex: Male
  Weight: 80 kg

DRUGS (6)
  1. VIOXX [Suspect]
     Indication: NECK PAIN
     Route: 048
     Dates: start: 20000101, end: 20010711
  2. VIOXX [Suspect]
     Route: 048
     Dates: start: 20010712, end: 20010713
  3. VIOXX [Suspect]
     Route: 048
     Dates: start: 20010714, end: 20010801
  4. VIOXX [Suspect]
     Route: 048
     Dates: start: 20031126
  5. SYNTHROID [Concomitant]
     Route: 065
  6. LIPITOR [Concomitant]
     Route: 065
     Dates: start: 19950101

REACTIONS (6)
  - CEREBROVASCULAR ACCIDENT [None]
  - INTERVERTEBRAL DISC PROTRUSION [None]
  - METATARSALGIA [None]
  - OSTEOARTHRITIS [None]
  - PLANTAR FASCIITIS [None]
  - PROCEDURAL HYPERTENSION [None]
